FAERS Safety Report 26126296 (Version 1)
Quarter: 2025Q4

REPORT INFORMATION
  Report Type: Spontaneous
  Country: EU (occurrence: EU)
  Receive Date: 20251205
  Receipt Date: 20251205
  Transmission Date: 20260118
  Serious: Yes (Hospitalization)
  Sender: BAXTER
  Company Number: None

PATIENT
  Age: 4 Year
  Sex: Female
  Weight: 32 kg

DRUGS (2)
  1. PROPOFOL [Suspect]
     Active Substance: PROPOFOL
     Indication: Sedation
     Dosage: 100 MG, TOTAL
     Route: 042
     Dates: start: 20251120, end: 20251120
  2. MIDAZOLAM HYDROCHLORIDE [Suspect]
     Active Substance: MIDAZOLAM HYDROCHLORIDE
     Indication: Sedation
     Dosage: 1 MG, TOTAL; INJECTABLE AND INFUSING SOLUTION EFG, 10 AMPOULES OF 5 ML
     Route: 042
     Dates: start: 20251120, end: 20251120

REACTIONS (3)
  - Somnolence [Recovering/Resolving]
  - Pyrexia [Recovering/Resolving]
  - Nausea [Recovering/Resolving]

NARRATIVE: CASE EVENT DATE: 20251120
